FAERS Safety Report 14955565 (Version 1)
Quarter: 2018Q2

REPORT INFORMATION
  Report Type: Report from Study
  Country: JP (occurrence: JP)
  Receive Date: 20180531
  Receipt Date: 20180531
  Transmission Date: 20180711
  Serious: Yes (Other)
  Sender: FDA-Public Use
  Company Number: JP-ACTELION-A-CH2018-172892

PATIENT
  Age: 48 Year
  Sex: Female

DRUGS (12)
  1. TRACLEER [Suspect]
     Active Substance: BOSENTAN
     Dosage: 31.25 MG, BID
     Route: 048
     Dates: start: 20170707
  2. BUFFERIN [Concomitant]
     Active Substance: ASPIRIN
     Dosage: UNK
     Dates: end: 20180115
  3. BUFFERIN [Concomitant]
     Active Substance: ASPIRIN
     Dosage: UNK
     Dates: start: 20180205
  4. TRACLEER [Suspect]
     Active Substance: BOSENTAN
     Dosage: 62.5 MG, QD
     Route: 048
     Dates: start: 20170906, end: 201711
  5. TRACLEER [Suspect]
     Active Substance: BOSENTAN
     Dosage: 125 MG, QD
     Route: 048
     Dates: start: 201711, end: 20180115
  6. PLETAAL [Concomitant]
     Active Substance: CILOSTAZOL
     Dosage: UNK
     Dates: end: 20180115
  7. TRACLEER [Suspect]
     Active Substance: BOSENTAN
     Dosage: 125 MG, BID
     Route: 048
     Dates: start: 20180326
  8. TRACLEER [Suspect]
     Active Substance: BOSENTAN
     Indication: SKIN ULCER
     Dosage: 62.5 MG, BID
     Route: 048
     Dates: start: 20170515, end: 20170531
  9. PLETAAL [Concomitant]
     Active Substance: CILOSTAZOL
     Dosage: UNK
     Dates: start: 20180205
  10. ANPLAG [Concomitant]
     Active Substance: SARPOGRELATE
     Dosage: UNK
  11. PALUX [Concomitant]
     Active Substance: ALPROSTADIL
     Dosage: UNK
  12. TRACLEER [Suspect]
     Active Substance: BOSENTAN
     Dosage: 15.625 MG, BID
     Route: 048
     Dates: start: 20170802, end: 20170905

REACTIONS (10)
  - Pyrexia [Recovered/Resolved]
  - Alanine aminotransferase increased [Recovered/Resolved]
  - Drug-induced liver injury [Recovered/Resolved]
  - Blood bilirubin increased [Recovered/Resolved]
  - Genital haemorrhage [Recovered/Resolved]
  - Blood alkaline phosphatase increased [Recovered/Resolved]
  - Aspartate aminotransferase increased [Recovered/Resolved]
  - Anaemia [Recovered/Resolved]
  - Decreased appetite [Recovered/Resolved]
  - Liver disorder [Recovered/Resolved]

NARRATIVE: CASE EVENT DATE: 20170531
